FAERS Safety Report 9796866 (Version 2)
Quarter: 2014Q1

REPORT INFORMATION
  Report Type: Report from Study
  Country: US (occurrence: US)
  Receive Date: 20140103
  Receipt Date: 20140131
  Transmission Date: 20141002
  Serious: Yes (Death)
  Sender: FDA-Public Use
  Company Number: US-OTSUKA-US-2013-12438

PATIENT
  Age: 68 Year
  Sex: Male

DRUGS (1)
  1. BUSULFEX [Suspect]
     Indication: STEM CELL TRANSPLANT
     Dosage: 1040 MG MILLIGRAM(S), TOTAL
     Route: 042
     Dates: start: 20091111, end: 20091115

REACTIONS (2)
  - Cardiac failure [Fatal]
  - Dyspnoea [Unknown]
